FAERS Safety Report 24747137 (Version 2)
Quarter: 2025Q4

REPORT INFORMATION
  Report Type: Report from Study
  Country: CA (occurrence: CA)
  Receive Date: 20241218
  Receipt Date: 20251217
  Transmission Date: 20260117
  Serious: Yes (Other)
  Sender: SAMSUNG BIOEPIS
  Company Number: CA-SAMSUNG BIOEPIS-SB-2024-37982

PATIENT
  Age: 86 Year
  Sex: Male

DRUGS (2)
  1. HADLIMA [Suspect]
     Active Substance: ADALIMUMAB-BWWD
     Indication: Rheumatoid arthritis
     Route: 058
     Dates: start: 20211208
  2. METHOTREXATE [Suspect]
     Active Substance: METHOTREXATE
     Indication: Product used for unknown indication
     Dates: end: 202408

REACTIONS (11)
  - Renal impairment [Unknown]
  - Renal failure [Unknown]
  - Disease progression [Unknown]
  - Psoriatic arthropathy [Unknown]
  - Plasma cell myeloma [Unknown]
  - Disability [Unknown]
  - Aortic valve stenosis [Unknown]
  - Psoriasis [Recovered/Resolved]
  - Therapeutic response shortened [Unknown]
  - Mobility decreased [Unknown]
  - Fear of disease [Unknown]

NARRATIVE: CASE EVENT DATE: 20240801
